FAERS Safety Report 5415023-3 (Version None)
Quarter: 2007Q3

REPORT INFORMATION
  Report Type: 
  Country: None (occurrence: None)
  Receive Date: 20070813
  Receipt Date: 20070726
  Transmission Date: 20080115
  Serious: Yes (Other)
  Sender: FDA-Public Use
  Company Number: 2007JP003227

PATIENT
  Sex: Male
  Weight: 2.9 kg

DRUGS (1)
  1. PROGRAF [Suspect]
     Dosage: TRANSPLACENTAL
     Route: 064

REACTIONS (5)
  - APGAR SCORE LOW [None]
  - DRUG EXPOSURE DURING PREGNANCY [None]
  - NEONATAL ASPHYXIA [None]
  - POSTMATURE BABY [None]
  - PREMATURE RUPTURE OF MEMBRANES [None]
